FAERS Safety Report 15362407 (Version 1)
Quarter: 2018Q3

REPORT INFORMATION
  Report Type: Spontaneous
  Country: JP (occurrence: JP)
  Receive Date: 20180907
  Receipt Date: 20180907
  Transmission Date: 20181010
  Serious: Yes (Other)
  Sender: FDA-Public Use
  Company Number: JP-PFIZER INC-2018355378

PATIENT
  Age: 21 Year
  Sex: Female
  Weight: 46.3 kg

DRUGS (8)
  1. CELECOXIB. [Suspect]
     Active Substance: CELECOXIB
  2. SOLU?MEDROL [Suspect]
     Active Substance: METHYLPREDNISOLONE SODIUM SUCCINATE
  3. LIDOCAINE. [Suspect]
     Active Substance: LIDOCAINE
  4. SANMEL [Suspect]
     Active Substance: SODIUM ALGINATE
  5. ACETAMINOPHEN. [Suspect]
     Active Substance: ACETAMINOPHEN
  6. PENTAZOCINE [Suspect]
     Active Substance: PENTAZOCINE
  7. THEO?DUR [Suspect]
     Active Substance: THEOPHYLLINE ANHYDROUS
  8. BISOLVON [Suspect]
     Active Substance: BROMHEXINE HYDROCHLORIDE

REACTIONS (5)
  - Oedema [Unknown]
  - Hypoxia [Unknown]
  - Dyspnoea [Unknown]
  - Generalised erythema [Unknown]
  - Asthma [Unknown]
